FAERS Safety Report 12055857 (Version 12)
Quarter: 2016Q4

REPORT INFORMATION
  Report Type: Report from Study
  Country: IT (occurrence: IT)
  Receive Date: 20160209
  Receipt Date: 20161209
  Transmission Date: 20170206
  Serious: Yes (Hospitalization)
  Sender: FDA-Public Use
  Company Number: IT-VERTEX PHARMACEUTICALS-2016-000485

PATIENT
  Age: 27 Year
  Sex: Female
  Weight: 58 kg

DRUGS (11)
  1. TRANEX [Concomitant]
     Active Substance: TRANEXAMIC ACID
     Route: 048
  2. MAALOX ANTACID [Concomitant]
     Active Substance: ALUMINUM HYDROXIDE\DIMETHICONE\MAGNESIUM HYDROXIDE
     Dosage: 10 ML, UNK
  3. SPIRIVA [Concomitant]
     Active Substance: TIOTROPIUM BROMIDE MONOHYDRATE
     Dosage: UNK
     Route: 055
  4. KALYDECO [Suspect]
     Active Substance: IVACAFTOR
     Indication: CYSTIC FIBROSIS
     Dosage: 300 MG, QD
     Route: 048
     Dates: start: 20150225
  5. KALYDECO [Suspect]
     Active Substance: IVACAFTOR
     Dosage: UNK
     Route: 048
  6. ADEK [Concomitant]
     Dosage: UNK
     Route: 048
     Dates: start: 20150307
  7. BACTRIM PERFUSIONE [Suspect]
     Active Substance: SULFAMETHOXAZOLE\TRIMETHOPRIM
     Indication: INFECTIVE PULMONARY EXACERBATION OF CYSTIC FIBROSIS
     Dosage: 800 MG, QD
     Route: 042
     Dates: start: 20160108, end: 20160114
  8. BREVA [Concomitant]
     Active Substance: ALBUTEROL\IPRATROPIUM
     Dosage: 16 DROPS
     Route: 055
  9. CAYSTON [Suspect]
     Active Substance: AZTREONAM
     Dosage: UNK
     Route: 055
  10. CREON [Concomitant]
     Active Substance: PANCRELIPASE AMYLASE\PANCRELIPASE LIPASE\PANCRELIPASE PROTEASE
     Dosage: UNK
  11. LANSOX [Concomitant]
     Active Substance: LANSOPRAZOLE
     Dosage: 30 MG, UNK
     Route: 048

REACTIONS (6)
  - Diarrhoea [Recovered/Resolved]
  - Tongue discolouration [Recovered/Resolved]
  - Erythema [Recovered/Resolved]
  - Vomiting [Recovered/Resolved]
  - Infective pulmonary exacerbation of cystic fibrosis [Recovered/Resolved]
  - Epistaxis [Recovered/Resolved]

NARRATIVE: CASE EVENT DATE: 20160113
